FAERS Safety Report 14700369 (Version 2)
Quarter: 2018Q2

REPORT INFORMATION
  Report Type: Spontaneous
  Country: US (occurrence: US)
  Receive Date: 20180330
  Receipt Date: 20180410
  Transmission Date: 20180711
  Serious: Yes (Death)
  Sender: FDA-Public Use
  Company Number: US-MALLINCKRODT-T201801276

PATIENT
  Age: 92 Year
  Sex: Female

DRUGS (1)
  1. H.P. ACTHAR [Suspect]
     Active Substance: CORTICOTROPIN
     Indication: CHORIORETINAL DISORDER
     Dosage: 80 UNITS/ML, EVERY 3 DAYS
     Route: 058
     Dates: start: 20161109, end: 20180213

REACTIONS (1)
  - Death [Fatal]

NARRATIVE: CASE EVENT DATE: 20180222
